FAERS Safety Report 6816376-1 (Version None)
Quarter: 2010Q3

REPORT INFORMATION
  Report Type: 
  Country: None (occurrence: None)
  Receive Date: 20100705
  Receipt Date: 20100628
  Transmission Date: 20110219
  Serious: Yes (Hospitalization)
  Sender: FDA-Public Use
  Company Number: PHHO2010FR01706

PATIENT
  Sex: Male
  Weight: 57 kg

DRUGS (8)
  1. ZOLEDRONATE T29581+SOLINJ+BM [Suspect]
     Indication: BONE SARCOMA
     Dosage: 4 MG
     Route: 042
     Dates: start: 20090526
  2. CALCIUM CARBONATE [Concomitant]
  3. VITAMIN D [Concomitant]
  4. ETOPOSIDE [Concomitant]
     Dosage: UNK
     Route: 042
     Dates: start: 20091002
  5. IFOSFAMIDE [Concomitant]
     Dosage: 20880 MG
     Route: 042
     Dates: start: 20090527
  6. MESNA [Concomitant]
     Dosage: UNK
     Route: 042
     Dates: start: 20090527
  7. CISPLATIN [Concomitant]
     Dosage: UNK
     Route: 042
     Dates: start: 20090526
  8. DOXORUBICIN HCL [Concomitant]
     Dosage: UNK
     Route: 042
     Dates: start: 20090526

REACTIONS (1)
  - SINUS TACHYCARDIA [None]
